FAERS Safety Report 7569001-9 (Version None)
Quarter: 2011Q2

REPORT INFORMATION
  Report Type: 
  Country: None (occurrence: None)
  Receive Date: 20110623
  Receipt Date: 20110620
  Transmission Date: 20111010
  Serious: Yes (Other)
  Sender: FDA-Public Use
  Company Number: DE-PFIZER INC-2011103945

PATIENT
  Age: 42 Year
  Sex: Male
  Weight: 90 kg

DRUGS (3)
  1. PANTOPRAZOLE [Concomitant]
     Dosage: UNK
  2. IBUPROFEN [Concomitant]
  3. CELEBREX [Suspect]
     Indication: MUSCULOSKELETAL PAIN
     Dosage: 200 MG, UNK
     Route: 048

REACTIONS (9)
  - NAUSEA [None]
  - ERYTHEMA OF EYELID [None]
  - EYE OEDEMA [None]
  - DYSPNOEA [None]
  - RESTLESSNESS [None]
  - ERYTHEMA [None]
  - HYPERSENSITIVITY [None]
  - SWELLING FACE [None]
  - PHARYNGEAL ERYTHEMA [None]
